FAERS Safety Report 7463025-8 (Version None)
Quarter: 2011Q2

REPORT INFORMATION
  Report Type: 
  Country: None (occurrence: None)
  Receive Date: 20110506
  Receipt Date: 20110408
  Transmission Date: 20111010
  Serious: Yes (Hospitalization, Other)
  Sender: FDA-Public Use
  Company Number: US-BAYER-2011-008783

PATIENT
  Age: 29 Year
  Sex: Female
  Weight: 74 kg

DRUGS (5)
  1. PHENTERMINE [Concomitant]
     Dosage: 37.5 MG, UNK
     Dates: start: 20090201
  2. DROSPIRENONE AND ETHINYL ESTRADIOL [Suspect]
     Indication: PRODUCT USED FOR UNKNOWN INDICATION
     Dosage: UNK
     Dates: start: 20080701, end: 20090301
  3. AMBIEN [Concomitant]
     Indication: SLEEP DISORDER THERAPY
     Dosage: UNK
     Dates: start: 20090101
  4. TRAMADOL [Concomitant]
     Indication: PAIN IN EXTREMITY
     Dosage: 50 MG, UNK
     Dates: start: 20080101
  5. TRIAMTERENE AND HYDROCHLOROTHIAZID [Concomitant]
     Dosage: UNK
     Dates: start: 20090301

REACTIONS (1)
  - DEEP VEIN THROMBOSIS [None]
